FAERS Safety Report 14386211 (Version 1)
Quarter: 2018Q1

REPORT INFORMATION
  Report Type: Spontaneous
  Country: US (occurrence: US)
  Receive Date: 20180115
  Receipt Date: 20180115
  Transmission Date: 20180509
  Serious: Yes (Other)
  Sender: FDA-Public Use
  Company Number: US-SA-2017SA076514

PATIENT
  Age: 34 Year
  Sex: Female
  Weight: 72.5 kg

DRUGS (11)
  1. NEOSAR [Concomitant]
     Active Substance: CYCLOPHOSPHAMIDE
  2. TAMOXIFEN [Concomitant]
     Active Substance: TAMOXIFEN
     Route: 065
     Dates: start: 20090211
  3. PEPCID AC [Concomitant]
     Active Substance: FAMOTIDINE
  4. RHINOCORT [Concomitant]
     Active Substance: BUDESONIDE
  5. TAXOTERE [Suspect]
     Active Substance: DOCETAXEL
     Indication: BREAST CANCER FEMALE
     Route: 051
     Dates: start: 20080624, end: 20080624
  6. DOXORUBICIN [Concomitant]
     Active Substance: DOXORUBICIN
  7. NEULASTA [Concomitant]
     Active Substance: PEGFILGRASTIM
  8. VITAMIN D [Concomitant]
     Active Substance: CHOLECALCIFEROL
  9. TAXOTERE [Suspect]
     Active Substance: DOCETAXEL
     Indication: BREAST CANCER FEMALE
     Route: 051
     Dates: start: 20080910, end: 20080910
  10. ELLENCE [Concomitant]
     Active Substance: EPIRUBICIN HYDROCHLORIDE
  11. CYTOXAN [Concomitant]
     Active Substance: CYCLOPHOSPHAMIDE

REACTIONS (2)
  - Alopecia [Not Recovered/Not Resolved]
  - Psychological trauma [Unknown]

NARRATIVE: CASE EVENT DATE: 200903
